FAERS Safety Report 9736769 (Version 1)
Quarter: 2013Q4

REPORT INFORMATION
  Report Type: Spontaneous
  Country: US (occurrence: US)
  Receive Date: 20131206
  Receipt Date: 20131206
  Transmission Date: 20140711
  Serious: No
  Sender: FDA-Public Use
  Company Number: US-BIOGENIDEC-2013BI092862

PATIENT
  Age: 48 Year
  Sex: Male

DRUGS (8)
  1. TECFIDERA [Suspect]
     Indication: MULTIPLE SCLEROSIS
     Route: 048
     Dates: start: 201309
  2. DETROL LA [Concomitant]
  3. AMPYRA ER [Concomitant]
  4. CO Q-10 [Concomitant]
  5. VITAMIN D 3 [Concomitant]
  6. IBUPROFEN [Concomitant]
  7. VITAMIN E [Concomitant]
  8. FISH OIL [Concomitant]

REACTIONS (1)
  - Flushing [Unknown]
